FAERS Safety Report 14549702 (Version 1)
Quarter: 2018Q1

REPORT INFORMATION
  Report Type: Spontaneous
  Country: US (occurrence: US)
  Receive Date: 20180219
  Receipt Date: 20180219
  Transmission Date: 20180509
  Serious: No
  Sender: FDA-Public Use
  Company Number: US-LUNDBECK-DKLU2042183

PATIENT
  Sex: Male

DRUGS (3)
  1. MIDODRINE [Suspect]
     Active Substance: MIDODRINE
     Indication: PRODUCT USED FOR UNKNOWN INDICATION
     Route: 065
  2. MIDODRINE [Suspect]
     Active Substance: MIDODRINE
     Route: 065
  3. NORTHERA [Suspect]
     Active Substance: DROXIDOPA
     Indication: PRODUCT USED FOR UNKNOWN INDICATION
     Dosage: SCHEDULE A (TITRATING)
     Route: 065
     Dates: start: 20171228

REACTIONS (1)
  - Blood pressure increased [Recovering/Resolving]
